FAERS Safety Report 14353229 (Version 11)
Quarter: 2018Q4

REPORT INFORMATION
  Report Type: Report from Study
  Country: CN (occurrence: CN)
  Receive Date: 20180105
  Receipt Date: 20181206
  Transmission Date: 20190204
  Serious: Yes (Hospitalization)
  Sender: FDA-Public Use
  Company Number: CN-AMGEN-CHNCT2018000907

PATIENT
  Age: 68 Year
  Sex: Female
  Weight: 48 kg

DRUGS (19)
  1. DEXAMETHASONE. [Suspect]
     Active Substance: DEXAMETHASONE
     Dosage: UNK UNK, PER CHEMO REGIM
     Route: 042
     Dates: start: 20180201
  2. DEXAMETHASONE. [Suspect]
     Active Substance: DEXAMETHASONE
     Indication: PLASMA CELL MYELOMA
     Dosage: UNK UNK, PER CHEMO REGIM
     Route: 042
     Dates: start: 20171114
  3. DEXTROMETHORPHAN HYDROBROMIDE. [Concomitant]
     Active Substance: DEXTROMETHORPHAN HYDROBROMIDE
     Dosage: 1 UNK, UNK
     Route: 048
     Dates: start: 20171225, end: 20180102
  4. CARFILZOMIB [Suspect]
     Active Substance: CARFILZOMIB
     Indication: PLASMA CELL MYELOMA
     Dosage: 41 MG, PER CHEMO REGIM
     Route: 042
     Dates: start: 20171114
  5. VALACYCLOVIR HYDROCHLORIDE. [Concomitant]
     Active Substance: VALACYCLOVIR HYDROCHLORIDE
     Dosage: 0.3 G, UNK
     Route: 048
     Dates: start: 20171112, end: 20180906
  6. LACTULOSE. [Concomitant]
     Active Substance: LACTULOSE
     Dosage: 15 ML, UNK
     Route: 048
     Dates: start: 20171108, end: 20171108
  7. CARFILZOMIB [Suspect]
     Active Substance: CARFILZOMIB
     Dosage: UNK UNK, PER CHEMO REGIM
     Route: 042
     Dates: start: 20180201
  8. PANTOPRAZOLE SODIUM. [Concomitant]
     Active Substance: PANTOPRAZOLE SODIUM
     Indication: GASTRITIS
     Dosage: 60 MG, UNK
     Route: 042
     Dates: start: 20171121, end: 20180209
  9. SODIUM CHLORIDE. [Concomitant]
     Active Substance: SODIUM CHLORIDE
     Dosage: 100-250 ML, UNK
     Route: 042
     Dates: start: 20171026, end: 20180202
  10. POTASSIUM CHLORIDE. [Concomitant]
     Active Substance: POTASSIUM CHLORIDE
     Indication: MINERAL SUPPLEMENTATION
     Dosage: 0.5-1 G, UNK
     Route: 048
     Dates: start: 20171121, end: 20180209
  11. LIDOCAINE HYDROCHLORIDE. [Concomitant]
     Active Substance: LIDOCAINE HYDROCHLORIDE
     Dosage: 0.2 G, UNK
     Route: 058
     Dates: start: 20171031, end: 20180105
  12. ESTAZOLAM. [Concomitant]
     Active Substance: ESTAZOLAM
     Dosage: 1 UNK, UNK
     Route: 048
     Dates: start: 20171115, end: 20171115
  13. FUROSEMIDE. [Concomitant]
     Active Substance: FUROSEMIDE
     Dosage: 10-40 MG, UNK
     Dates: start: 20171120, end: 20180116
  14. OMEPRAZOLE SODIUM [Concomitant]
     Active Substance: OMEPRAZOLE SODIUM
     Dosage: 40 MG, UNK
     Route: 042
     Dates: start: 20171027, end: 20171115
  15. EUCALYPTOL LIMONENE PINENE [Concomitant]
     Dosage: 0.3 G, UNK
     Route: 048
     Dates: start: 20171225, end: 20171231
  16. SPIRONOLACTONE. [Concomitant]
     Active Substance: SPIRONOLACTONE
     Dosage: 20 MG, UNK
     Route: 048
     Dates: start: 20171120, end: 20180116
  17. CEFOPERAZONE SODIUM AND SULBACTAM SODIUM [Concomitant]
     Active Substance: CEFOPERAZONE SODIUM\SULBACTAM SODIUM
     Dosage: 3 G, UNK
     Route: 042
     Dates: start: 20171104, end: 20171112
  18. FLUPENTIXOL W/MELITRACEN [Concomitant]
     Dosage: 1 UNK, UNK
     Route: 048
     Dates: start: 20171121, end: 20180209
  19. PARACETAMOL AND PSEUDOEPHEDRINE HYDROCHLORIDE [Concomitant]
     Dosage: 1 UNK, UNK
     Route: 048
     Dates: start: 20171225, end: 20180102

REACTIONS (3)
  - Acute kidney injury [Recovered/Resolved]
  - Platelet count decreased [Recovered/Resolved]
  - Hypertension [Recovered/Resolved]

NARRATIVE: CASE EVENT DATE: 20171229
